FAERS Safety Report 8512822-6 (Version None)
Quarter: 2012Q3

REPORT INFORMATION
  Report Type: 
  Country: None (occurrence: None)
  Receive Date: 20120705
  Receipt Date: 20120625
  Transmission Date: 20120928
  Serious: Yes (Life-Threatening, Hospitalization, Other)
  Sender: FDA-Public Use
  Company Number: FK201201753

PATIENT
  Age: 48 Year
  Sex: Male
  Weight: 48 kg

DRUGS (15)
  1. ROCURONIUM BROMIDE [Suspect]
     Indication: PRODUCT USED FOR UNKNOWN INDICATION
     Dosage: INTRAVENOUS (NOT OTHERWISE SPECIFIED)
     Route: 042
     Dates: start: 20120612, end: 20120612
  2. AVASTATIN (SIMVASTATIN) [Concomitant]
  3. MIRTAZAPINE [Concomitant]
  4. AMITRIPTYLIN (AMITRIPTYLINE HYDROCHLORIDE) [Concomitant]
  5. OXYCODONE HCL [Concomitant]
  6. OXYGEN (OXYGEN) [Concomitant]
  7. ACETAMINOPHEN [Concomitant]
  8. FENTANYL [Concomitant]
  9. GLYCERINE (GLYCEROL) [Concomitant]
  10. SEVOFLURANE [Concomitant]
  11. HARTMANN'S SOLUTION (RINGER-LACTATE /01126301/) [Concomitant]
  12. NITROUS OXIDE (NITROUS OXIDE) [Concomitant]
  13. ONDANSETRON [Concomitant]
  14. METOCLOPRAMIDE [Concomitant]
  15. PROPOFOL [Concomitant]

REACTIONS (3)
  - PULSELESS ELECTRICAL ACTIVITY [None]
  - ANAPHYLACTIC REACTION [None]
  - CARDIAC ARREST [None]
